FAERS Safety Report 6147823-9 (Version None)
Quarter: 2009Q2

REPORT INFORMATION
  Report Type: 
  Country: None (occurrence: None)
  Receive Date: 20090408
  Receipt Date: 20090406
  Transmission Date: 20091009
  Serious: Yes (Hospitalization, Other)
  Sender: FDA-Public Use
  Company Number: US-BAYER-200838517NA

PATIENT
  Age: 28 Year
  Sex: Female
  Weight: 51 kg

DRUGS (1)
  1. MIRENA [Suspect]
     Indication: CONTRACEPTION
     Dosage: CONTINUOUS
     Route: 015
     Dates: start: 20070208, end: 20081031

REACTIONS (7)
  - ABDOMINAL PAIN LOWER [None]
  - COMPLICATION OF DEVICE INSERTION [None]
  - DIZZINESS [None]
  - ENDOMETRITIS [None]
  - FUNGAL INFECTION [None]
  - PELVIC PAIN [None]
  - STAPHYLOCOCCAL INFECTION [None]
